FAERS Safety Report 9630174 (Version 2)
Quarter: 2013Q4

REPORT INFORMATION
  Report Type: Report from Study
  Country: US (occurrence: US)
  Receive Date: 20131017
  Receipt Date: 20131108
  Transmission Date: 20140711
  Serious: Yes (Other)
  Sender: FDA-Public Use
  Company Number: US-US-EMD SERONO, INC.-7243305

PATIENT
  Age: 41 Year
  Sex: Female

DRUGS (2)
  1. REBIF [Suspect]
     Indication: RELAPSING-REMITTING MULTIPLE SCLEROSIS
     Route: 058
     Dates: start: 20101022, end: 201302
  2. REBIF [Suspect]
     Dates: start: 201307

REACTIONS (3)
  - Rotator cuff syndrome [Unknown]
  - White blood cell count decreased [Unknown]
  - Influenza like illness [Recovered/Resolved]
